FAERS Safety Report 23675081 (Version 1)
Quarter: 2024Q1

REPORT INFORMATION
  Report Type: Spontaneous
  Country: US (occurrence: US)
  Receive Date: 20240326
  Receipt Date: 20240326
  Transmission Date: 20240409
  Serious: Yes (Death, Life-Threatening, Hospitalization, Other)
  Sender: FDA-Public Use
  Company Number: US-JNJFOC-20240356181

PATIENT

DRUGS (1)
  1. CARVYKTI [Suspect]
     Active Substance: CILTACABTAGENE AUTOLEUCEL
     Indication: Plasma cell myeloma
     Route: 065

REACTIONS (14)
  - Second primary malignancy [Fatal]
  - Breast cancer [Unknown]
  - Angiosarcoma [Unknown]
  - Prostate cancer [Unknown]
  - Malignant melanoma in situ [Unknown]
  - Malignant melanoma [Unknown]
  - Squamous cell carcinoma of skin [Unknown]
  - Basal cell carcinoma [Unknown]
  - Myelodysplastic syndrome [Unknown]
  - Acute myeloid leukaemia [Unknown]
  - Hypogammaglobulinaemia [Unknown]
  - Cytokine release syndrome [Unknown]
  - Haemophagocytic lymphohistiocytosis [Unknown]
  - Neurotoxicity [Unknown]
